FAERS Safety Report 24838505 (Version 1)
Quarter: 2025Q1

REPORT INFORMATION
  Report Type: Spontaneous
  Country: GB (occurrence: GB)
  Receive Date: 20250113
  Receipt Date: 20250113
  Transmission Date: 20250408
  Serious: Yes (Other)
  Sender: ELI LILLY AND COMPANY
  Company Number: None

PATIENT
  Age: 26 Year
  Sex: Female
  Weight: 79 kg

DRUGS (1)
  1. MOUNJARO [Suspect]
     Active Substance: TIRZEPATIDE
     Indication: Weight control
     Dosage: 5 MG, WEEKLY (1/W)
     Route: 065
     Dates: start: 20241009, end: 20241215

REACTIONS (5)
  - Maternal exposure during breast feeding [Unknown]
  - Suicidal ideation [Recovering/Resolving]
  - Intentional self-injury [Unknown]
  - Mania [Unknown]
  - Depression [Unknown]

NARRATIVE: CASE EVENT DATE: 20241214
